FAERS Safety Report 5757140-4 (Version None)
Quarter: 2008Q2

REPORT INFORMATION
  Report Type: 
  Country: None (occurrence: None)
  Receive Date: 20080529
  Receipt Date: 20080514
  Transmission Date: 20081010
  Serious: Yes (Hospitalization)
  Sender: FDA-Public Use
  Company Number: 234507J08USA

PATIENT
  Age: 28 Year
  Sex: Female
  Weight: 49.4421 kg

DRUGS (6)
  1. REBIF [Suspect]
     Indication: MULTIPLE SCLEROSIS
     Dosage: 44 MCG, 3 IN 1 WEEKS, SUBCUTANEOUS
     Route: 058
     Dates: start: 20080124, end: 20080423
  2. REBIF [Suspect]
     Indication: MULTIPLE SCLEROSIS
     Dosage: 44 MCG, 3 IN 1 WEEKS, SUBCUTANEOUS
     Route: 058
     Dates: start: 20080507
  3. MUSCLE RELAXANT (MUSCLE RELAXANTT [Suspect]
     Dates: start: 20080101, end: 20080101
  4. BACLOFEN [Concomitant]
  5. TYLENOL (COTYLENOL) [Concomitant]
  6. NEXIUM [Concomitant]

REACTIONS (4)
  - CONDITION AGGRAVATED [None]
  - CYSTITIS [None]
  - HYPOTENSION [None]
  - MULTIPLE SCLEROSIS [None]
